FAERS Safety Report 4762659-9 (Version None)
Quarter: 2005Q3

REPORT INFORMATION
  Report Type: 
  Country: None (occurrence: None)
  Receive Date: 20050907
  Receipt Date: 20050829
  Transmission Date: 20060218
  Serious: Yes (Hospitalization, Disabling)
  Sender: FDA-Public Use
  Company Number: 2005UW12802

PATIENT
  Age: 70 Year
  Sex: Female

DRUGS (4)
  1. SEROQUEL [Suspect]
     Dosage: 300 MG AND 25 MG PRN
     Route: 048
  2. SEROQUEL [Suspect]
     Dosage: 200 MG HS AND 100 MG PRN
     Route: 048
  3. EFFEXOR [Concomitant]
     Indication: DEPRESSION
     Route: 048
     Dates: end: 20050819
  4. GABAPENTIN [Concomitant]
     Route: 048

REACTIONS (6)
  - AMNESIA [None]
  - APHASIA [None]
  - CONFUSIONAL STATE [None]
  - DISORIENTATION [None]
  - SEROTONIN SYNDROME [None]
  - URINARY RETENTION [None]
